FAERS Safety Report 21446600 (Version 4)
Quarter: 2023Q1

REPORT INFORMATION
  Report Type: Report from Study
  Country: US (occurrence: US)
  Receive Date: 20221012
  Receipt Date: 20230328
  Transmission Date: 20230417
  Serious: No
  Sender: FDA-Public Use
  Company Number: US-NOVARTISTESTPH-NVSC2022US230139

PATIENT
  Sex: Male

DRUGS (2)
  1. TASIGNA [Suspect]
     Active Substance: NILOTINIB
     Indication: Philadelphia positive chronic myeloid leukaemia
     Dosage: 300 MG, BID
     Route: 048
  2. TASIGNA [Suspect]
     Active Substance: NILOTINIB
     Dosage: 150 MG, BID
     Route: 048

REACTIONS (8)
  - Renal pain [Recovering/Resolving]
  - Influenza [Unknown]
  - Back pain [Recovering/Resolving]
  - Insomnia [Recovering/Resolving]
  - White blood cell count decreased [Unknown]
  - Nausea [Recovering/Resolving]
  - Vomiting [Unknown]
  - Inappropriate schedule of product administration [Unknown]
